FAERS Safety Report 23573431 (Version 2)
Quarter: 2024Q1

REPORT INFORMATION
  Report Type: Spontaneous
  Country: PK (occurrence: PK)
  Receive Date: 20240228
  Receipt Date: 20240329
  Transmission Date: 20240409
  Serious: Yes (Other)
  Sender: FDA-Public Use
  Company Number: PK-PFIZER INC-PV202400024994

PATIENT
  Age: 37 Year
  Sex: Female

DRUGS (6)
  1. ENBREL [Suspect]
     Active Substance: ETANERCEPT
     Indication: Rheumatoid arthritis
     Dosage: 50 MILLIGRAM, QWK (50 MG, WEEKLY)
     Route: 058
     Dates: start: 202001
  2. FOLIC ACID [Concomitant]
     Active Substance: FOLIC ACID
     Indication: Product used for unknown indication
     Dosage: 5 MILLIGRAM (5 MG, DAILY (AFTER MEAL CONTINUE)
     Route: 065
  3. D SUN [Concomitant]
     Indication: Product used for unknown indication
     Dosage: 1 DOSAGE FORM (1 DF, EVERY 2 WEEKS (AFTER MEAL CONTINUE)
     Route: 065
  4. FEFOL VIT [Concomitant]
     Indication: Product used for unknown indication
     Dosage: 1 DOSAGE FORM (1 DF, DAILY)
     Route: 065
  5. DICLOFENAC SODIUM [Concomitant]
     Active Substance: DICLOFENAC\DICLOFENAC SODIUM
     Indication: Product used for unknown indication
     Dosage: UNK UNK, TID (UNK UNK, 3X/DAY (APPLY LOCALLY)
     Route: 065
  6. PANADOL [Concomitant]
     Active Substance: ACETAMINOPHEN
     Indication: Pain
     Dosage: 2 DOSAGE FORM (2 DF, AS NEEDED (AFTER MEAL, WHEN REQUIRED)
     Route: 065

REACTIONS (3)
  - Cholestasis [Unknown]
  - Liver disorder [Unknown]
  - Hepatitis [Unknown]

NARRATIVE: CASE EVENT DATE: 20200501
